FAERS Safety Report 10467692 (Version 2)
Quarter: 2014Q4

REPORT INFORMATION
  Report Type: Spontaneous
  Country: HU (occurrence: HU)
  Receive Date: 20140922
  Receipt Date: 20141013
  Transmission Date: 20150528
  Serious: Yes (Death)
  Sender: FDA-Public Use
  Company Number: HU-GLAXOSMITHKLINE-B1035298A

PATIENT
  Age: 52 Year
  Sex: Male

DRUGS (3)
  1. VOTRIENT [Suspect]
     Active Substance: PAZOPANIB HYDROCHLORIDE
     Indication: RENAL CELL CARCINOMA
     Route: 065
     Dates: start: 201105, end: 20121012
  2. VOTRIENT [Suspect]
     Active Substance: PAZOPANIB HYDROCHLORIDE
     Indication: RENAL CELL CARCINOMA
     Route: 065
     Dates: start: 20121207
  3. VOTRIENT [Suspect]
     Active Substance: PAZOPANIB HYDROCHLORIDE
     Indication: RENAL CELL CARCINOMA
     Route: 065
     Dates: start: 20110404, end: 20110503

REACTIONS (15)
  - Nausea [Unknown]
  - Musculoskeletal pain [Not Recovered/Not Resolved]
  - Hepatic enzyme increased [Recovered/Resolved]
  - Fatigue [Unknown]
  - Disease progression [Fatal]
  - Pallor [Not Recovered/Not Resolved]
  - Visual impairment [Unknown]
  - Chest pain [Not Recovered/Not Resolved]
  - Decreased appetite [Not Recovered/Not Resolved]
  - Hypertension [Unknown]
  - Weight decreased [Not Recovered/Not Resolved]
  - Abdominal pain [Not Recovered/Not Resolved]
  - Diarrhoea [Unknown]
  - Dyspnoea [Not Recovered/Not Resolved]
  - Dysgeusia [Recovered/Resolved]

NARRATIVE: CASE EVENT DATE: 2011
